FAERS Safety Report 4997882-1 (Version None)
Quarter: 2006Q2

REPORT INFORMATION
  Report Type: 
  Country: None (occurrence: None)
  Receive Date: 20060510
  Receipt Date: 20050922
  Transmission Date: 20061013
  Serious: Yes (Death, Hospitalization)
  Sender: FDA-Public Use
  Company Number: US-BRISTOL-MYERS SQUIBB COMPANY-13120035

PATIENT
  Age: 64 Year
  Sex: Male

DRUGS (6)
  1. ERBITUX [Suspect]
     Indication: NON-SMALL CELL LUNG CANCER
     Dosage: INITIAL TX DATE: 31-MAY-05. RECEIVED 480 MG ON 24-OCT-2005.
     Route: 042
     Dates: start: 20050919, end: 20050919
  2. CARBOPLATIN [Suspect]
     Indication: NON-SMALL CELL LUNG CANCER
     Dosage: INITIAL TX DATE: 06-JUN-05.
     Route: 042
     Dates: start: 20050808, end: 20050808
  3. BENADRYL [Concomitant]
     Dates: start: 20050531, end: 20050919
  4. FENTANYL [Concomitant]
     Dates: start: 20050510, end: 20051105
  5. PERCOCET [Concomitant]
     Dates: start: 20050510, end: 20051105
  6. ATENOLOL [Concomitant]
     Dates: start: 20050426, end: 20051105

REACTIONS (4)
  - FAECALOMA [None]
  - MALIGNANT NEOPLASM PROGRESSION [None]
  - PNEUMONIA [None]
  - RESPIRATORY FAILURE [None]
